FAERS Safety Report 5468452-6 (Version None)
Quarter: 2007Q3

REPORT INFORMATION
  Report Type: 
  Country: None (occurrence: None)
  Receive Date: 20070926
  Receipt Date: 20070717
  Transmission Date: 20080115
  Serious: No
  Sender: FDA-Public Use
  Company Number: US-BRISTOL-MYERS SQUIBB COMPANY-13797378

PATIENT
  Age: 83 Year
  Sex: Female
  Weight: 45 kg

DRUGS (5)
  1. ORENCIA [Suspect]
     Indication: RHEUMATOID ARTHRITIS
     Dosage: INITIAL-2 1/2 DOSES 2 WKS APART; 2ND 1/2 DOSE GIVEN 3 WEEKS AGO; 2ND FULL DOSE 1 WEEK AGO.
     Route: 042
     Dates: start: 20070301
  2. TYLENOL EXTRA STRENGTH [Concomitant]
  3. PREDNISONE [Concomitant]
  4. CITRACAL [Concomitant]
  5. CENTRUM SILVER [Concomitant]

REACTIONS (8)
  - ASTHENIA [None]
  - BODY TEMPERATURE INCREASED [None]
  - BURNING SENSATION [None]
  - DIZZINESS [None]
  - EPISTAXIS [None]
  - HYPOAESTHESIA [None]
  - PRURITUS [None]
  - VISION BLURRED [None]
